FAERS Safety Report 18455041 (Version 1)
Quarter: 2020Q4

REPORT INFORMATION
  Report Type: Spontaneous
  Country: US (occurrence: US)
  Receive Date: 20201103
  Receipt Date: 20201103
  Transmission Date: 20210114
  Serious: No
  Sender: FDA-Public Use
  Company Number: US-AMGEN-USASP2020176731

PATIENT

DRUGS (2)
  1. OTEZLA [Suspect]
     Active Substance: APREMILAST
     Indication: PSORIASIS
     Dosage: UNK
     Route: 065
  2. DERMA SMOOTHE [Concomitant]
     Indication: PSORIASIS
     Dosage: UNK
     Route: 065

REACTIONS (1)
  - Nausea [Not Recovered/Not Resolved]
